FAERS Safety Report 4759045-4 (Version None)
Quarter: 2005Q3

REPORT INFORMATION
  Report Type: 
  Country: None (occurrence: None)
  Receive Date: 20050901
  Receipt Date: 20050822
  Transmission Date: 20060218
  Serious: Yes (Other)
  Sender: FDA-Public Use
  Company Number: NLGE0000873-08/02/2005

PATIENT
  Age: 48 Year
  Sex: Female

DRUGS (8)
  1. LITHIUM CARBONATE [Suspect]
     Indication: DEPRESSION
     Dosage: 1G PER DAY
     Route: 048
     Dates: start: 20030101
  2. SERTRALINE HCL [Suspect]
     Indication: DEPRESSION
     Dosage: 75MG PER DAY
     Route: 048
     Dates: start: 20030101
  3. NORTRIPTYLINE HCL [Suspect]
     Indication: DEPRESSION
     Dosage: 200MG PER DAY
     Route: 048
     Dates: start: 20030101
  4. CLOZAPINE [Suspect]
     Indication: MAJOR DEPRESSION
     Dosage: 175MG PER DAY
     Route: 048
     Dates: start: 20050603
  5. HALOPERIDOL [Concomitant]
     Indication: DEPRESSION
     Dosage: 20MG PER DAY
     Route: 065
     Dates: start: 20030101
  6. ZOPICLONE [Concomitant]
     Indication: DEPRESSION
     Dosage: 15MG PER DAY
     Route: 065
     Dates: start: 20030101
  7. PROCYCLIDINE HYDROCHLORIDE 2MG TAB [Concomitant]
     Indication: DEPRESSION
     Dosage: 15MG PER DAY
     Route: 065
     Dates: start: 20030101
  8. THYROXINE [Concomitant]
     Indication: HYPERTHYROIDISM
     Route: 065
     Dates: start: 19930101

REACTIONS (1)
  - NEUTROPHIL COUNT DECREASED [None]
